FAERS Safety Report 10611507 (Version 1)
Quarter: 2014Q4

REPORT INFORMATION
  Report Type: Spontaneous
  Country: US (occurrence: US)
  Receive Date: 20141126
  Receipt Date: 20141126
  Transmission Date: 20150529
  Serious: Yes (Death)
  Sender: FDA-Public Use
  Company Number: US-OTSUKA-US-2014-14191

PATIENT

DRUGS (1)
  1. SAMSCA [Suspect]
     Active Substance: TOLVAPTAN
     Indication: HYPONATRAEMIA
     Dosage: UNK, SINGLE
     Route: 048
     Dates: start: 201411, end: 201411

REACTIONS (1)
  - Hypernatraemia [Fatal]

NARRATIVE: CASE EVENT DATE: 201411
